FAERS Safety Report 23175097 (Version 9)
Quarter: 2024Q1

REPORT INFORMATION
  Report Type: Report from Study
  Country: NL (occurrence: NL)
  Receive Date: 20231112
  Receipt Date: 20240206
  Transmission Date: 20240409
  Serious: Yes (Hospitalization, Other)
  Sender: FDA-Public Use
  Company Number: NL-ABBVIE-5383415

PATIENT
  Age: 71 Year
  Sex: Male

DRUGS (17)
  1. CARBIDOPA\LEVODOPA [Suspect]
     Active Substance: CARBIDOPA\LEVODOPA
     Indication: Parkinson^s disease
     Dosage: REMAINS AT 16 HOURS
     Route: 050
     Dates: start: 20210913
  2. CARBIDOPA\LEVODOPA [Suspect]
     Active Substance: CARBIDOPA\LEVODOPA
     Dosage: MD 6.5 ML; CD 6.1 ML/H; ED 3.2 ML; END 2.0 ML; CND 3.9 ML/H?REMAINS AT 24 HOURS,
     Route: 050
     Dates: start: 2023, end: 2023
  3. CARBIDOPA\LEVODOPA [Suspect]
     Active Substance: CARBIDOPA\LEVODOPA
     Dosage: MD 6.5 ML; CD 6.3 ML/H; ED 3.2 ML; END: 2.0 ML; CND: 3.9 ML/H
     Route: 050
     Dates: start: 20231109, end: 20240116
  4. CARBIDOPA\LEVODOPA [Suspect]
     Active Substance: CARBIDOPA\LEVODOPA
     Dosage: MD 6.5 ML; CD 6.2 ML/H; ED 3.2 ML?REMAINS AT 24 HOURS
     Route: 050
  5. CARBIDOPA\LEVODOPA [Suspect]
     Active Substance: CARBIDOPA\LEVODOPA
     Route: 050
  6. CARBIDOPA\LEVODOPA [Suspect]
     Active Substance: CARBIDOPA\LEVODOPA
     Dosage: MD 6.5 ML; CD 5.9 ML/H; ED 3.2 ML; END 2.0 ML; CND 3.6 ML/H?REMAINS AT 16 HOURS
     Route: 050
  7. CARBIDOPA\LEVODOPA [Suspect]
     Active Substance: CARBIDOPA\LEVODOPA
     Route: 050
     Dates: start: 202401
  8. CARBIDOPA\LEVODOPA [Suspect]
     Active Substance: CARBIDOPA\LEVODOPA
     Dosage: MD 6.5 ML; REMAINS AT 16 HOURS
     Route: 050
  9. CARBIDOPA\LEVODOPA [Suspect]
     Active Substance: CARBIDOPA\LEVODOPA
     Dosage: MD 6.5 ML; CD 6.3 ML/H; ED 3.2 ML;?REMAINS AT 24 HOURS
     Route: 050
     Dates: start: 20230619, end: 20231109
  10. CARBIDOPA\LEVODOPA [Suspect]
     Active Substance: CARBIDOPA\LEVODOPA
     Dosage: MD 6.0 ML; CD 6.1 ML/H; ED 3.2 ML; END: 2.0 ML; CND: 4.0 ML/H, LAST ADMIN DATE- JAN 2024
     Route: 050
     Dates: start: 20240116
  11. POLYETHYLENE GLYCOLS [Concomitant]
     Active Substance: POLYETHYLENE GLYCOLS
     Indication: Abnormal faeces
  12. BENSERAZIDE\LEVODOPA [Concomitant]
     Active Substance: BENSERAZIDE\LEVODOPA
     Indication: Product used for unknown indication
     Dosage: 100/25 MG?FREQUENCY TEXT: WHEN IN OFF, MAXIUMUM OF 3 PER DAY
     Route: 048
     Dates: end: 20210913
  13. LACTULOSE-H [Concomitant]
     Indication: Abnormal faeces
  14. CARBIDOPA\LEVODOPA [Concomitant]
     Active Substance: CARBIDOPA\LEVODOPA
     Indication: Product used for unknown indication
     Dosage: 100/25 MG 1 TIME 1 UNIT WITH 250 MG [NOS] MGA
     Route: 048
     Dates: end: 20210913
  15. CARBIDOPA\LEVODOPA [Concomitant]
     Active Substance: CARBIDOPA\LEVODOPA
     Indication: Product used for unknown indication
     Dosage: 50/12.5 MG
     Dates: end: 20210913
  16. CARBIDOPA\LEVODOPA [Concomitant]
     Active Substance: CARBIDOPA\LEVODOPA
     Indication: Product used for unknown indication
     Dosage: 200/50 MG 1 TIME 1 UNIT WITH 250 MG [NOS] MGA
     Route: 048
     Dates: end: 20210913
  17. CARBIDOPA\LEVODOPA [Concomitant]
     Active Substance: CARBIDOPA\LEVODOPA
     Indication: Product used for unknown indication
     Dosage: 100/25 MG

REACTIONS (48)
  - Foot fracture [Not Recovered/Not Resolved]
  - Gait disturbance [Not Recovered/Not Resolved]
  - Skin disorder [Recovering/Resolving]
  - Depressed mood [Not Recovered/Not Resolved]
  - Poor quality sleep [Not Recovered/Not Resolved]
  - Freezing phenomenon [Not Recovered/Not Resolved]
  - Memory impairment [Not Recovered/Not Resolved]
  - Hypotension [Unknown]
  - Stoma complication [Recovered/Resolved]
  - Bradykinesia [Not Recovered/Not Resolved]
  - Dystonia [Not Recovered/Not Resolved]
  - On and off phenomenon [Unknown]
  - Acrochordon [Unknown]
  - Unevaluable event [Not Recovered/Not Resolved]
  - Malaise [Recovered/Resolved]
  - Tremor [Not Recovered/Not Resolved]
  - Cognitive disorder [Not Recovered/Not Resolved]
  - Muscle rigidity [Not Recovered/Not Resolved]
  - Initial insomnia [Not Recovered/Not Resolved]
  - Dyskinesia [Recovered/Resolved]
  - Hallucination [Not Recovered/Not Resolved]
  - Gait disturbance [Recovered/Resolved]
  - Unevaluable event [Recovering/Resolving]
  - Stoma site reaction [Not Recovered/Not Resolved]
  - Device placement issue [Not Recovered/Not Resolved]
  - Nocturia [Not Recovered/Not Resolved]
  - Device issue [Unknown]
  - Abnormal dreams [Not Recovered/Not Resolved]
  - Dyskinesia [Recovered/Resolved]
  - Memory impairment [Not Recovered/Not Resolved]
  - Mobility decreased [Not Recovered/Not Resolved]
  - Arthralgia [Not Recovered/Not Resolved]
  - Discharge [Unknown]
  - Ocular lymphoma [Not Recovered/Not Resolved]
  - Dyskinesia [Recovered/Resolved]
  - Urinary tract infection [Unknown]
  - Frustration tolerance decreased [Not Recovered/Not Resolved]
  - Ankle operation [Recovered/Resolved]
  - Cataract [Not Recovered/Not Resolved]
  - Dyskinesia [Recovered/Resolved]
  - Fatigue [Not Recovered/Not Resolved]
  - Cystitis [Recovering/Resolving]
  - Dyskinesia [Recovered/Resolved]
  - Choking sensation [Not Recovered/Not Resolved]
  - Gastritis bacterial [Recovered/Resolved]
  - Disturbance in attention [Not Recovered/Not Resolved]
  - Executive dysfunction [Not Recovered/Not Resolved]
  - Dyskinesia [Not Recovered/Not Resolved]

NARRATIVE: CASE EVENT DATE: 20230101
